FAERS Safety Report 7720528-6 (Version None)
Quarter: 2011Q3

REPORT INFORMATION
  Report Type: 
  Country: None (occurrence: None)
  Receive Date: 20110831
  Receipt Date: 20110831
  Transmission Date: 20111222
  Serious: Yes (Other)
  Sender: FDA-Public Use
  Company Number: None

PATIENT
  Age: 84 Year
  Sex: Female
  Weight: 83.914 kg

DRUGS (1)
  1. CIPROFLOXACIN [Suspect]
     Dosage: 400MG
     Route: 042
     Dates: start: 20110829, end: 20110829

REACTIONS (2)
  - PRURITUS [None]
  - ERYTHEMA [None]
